FAERS Safety Report 4621714-4 (Version None)
Quarter: 2005Q1

REPORT INFORMATION
  Report Type: 
  Country: None (occurrence: None)
  Receive Date: 20050329
  Receipt Date: 20030324
  Transmission Date: 20050727
  Serious: Yes (Death, Hospitalization, Other)
  Sender: FDA-Public Use
  Company Number: US-BRISTOL-MYERS SQUIBB COMPANY-12201612

PATIENT
  Age: 58 Year
  Sex: Male
  Weight: 104 kg

DRUGS (16)
  1. CETUXIMAB [Suspect]
     Indication: NEOPLASM MALIGNANT
     Dates: start: 20010130
  2. CISPLATIN [Suspect]
     Indication: NEOPLASM MALIGNANT
     Route: 042
  3. SYNTHROID [Concomitant]
     Indication: HYPOTHYROIDISM
  4. DARVOCET [Concomitant]
  5. LORTAB [Concomitant]
     Indication: DYSPHAGIA
     Dates: start: 20001218
  6. DURAGESIC PATCH [Concomitant]
     Indication: DYSPHAGIA
     Dates: start: 20010126, end: 20010315
  7. DECADRON [Concomitant]
     Indication: VOMITING
     Dates: start: 20010125
  8. ZOFRAN [Concomitant]
     Indication: VOMITING
     Dates: start: 20010206
  9. COMPAZINE [Concomitant]
     Indication: VOMITING
     Dates: start: 20001113
  10. DULCOLAX [Concomitant]
     Indication: CONSTIPATION
     Dates: start: 20010212
  11. BENADRYL [Concomitant]
     Indication: PREMEDICATION
     Dates: start: 20010206, end: 20010313
  12. TUSSIN DM [Concomitant]
     Indication: PROPHYLAXIS
     Dates: start: 20001218, end: 20010301
  13. CLONIDINE [Concomitant]
     Dosage: 1 MG 30-JAN-2001 AND 02-MAR-2001 TO 05-MAR-2001; 2 MG 05-MAR-2001 TO UNKNOWN
     Dates: start: 20010130, end: 20010305
  14. ATIVAN [Concomitant]
     Dates: start: 20010202, end: 20010202
  15. ALTEPLASE [Concomitant]
     Dates: start: 20010130, end: 20010131
  16. DEXTROSE + SALINE [Concomitant]
     Dates: start: 20010130, end: 20010130

REACTIONS (7)
  - DEHYDRATION [None]
  - FAILURE TO THRIVE [None]
  - FEBRILE NEUTROPENIA [None]
  - NAUSEA [None]
  - OESOPHAGEAL CANDIDIASIS [None]
  - RENAL FAILURE ACUTE [None]
  - VOMITING [None]
